FAERS Safety Report 7862982-5 (Version None)
Quarter: 2011Q4

REPORT INFORMATION
  Report Type: 
  Country: None (occurrence: None)
  Receive Date: 20111027
  Receipt Date: 20101123
  Transmission Date: 20120403
  Serious: No
  Sender: FDA-Public Use
  Company Number: US-AMGEN-USASP2010006381

PATIENT
  Age: 44 Year
  Sex: Female

DRUGS (1)
  1. ENBREL [Suspect]
     Indication: PSORIATIC ARTHROPATHY
     Dates: start: 20100915

REACTIONS (7)
  - NASOPHARYNGITIS [None]
  - SPUTUM DISCOLOURED [None]
  - HEADACHE [None]
  - ARTHRALGIA [None]
  - PYREXIA [None]
  - ARTHRITIS [None]
  - PRODUCTIVE COUGH [None]
